FAERS Safety Report 6242764-0 (Version None)
Quarter: 2009Q2

REPORT INFORMATION
  Report Type: 
  Country: None (occurrence: None)
  Receive Date: 20090624
  Receipt Date: 20090618
  Transmission Date: 20091009
  Serious: Yes (Disabling, Other)
  Sender: FDA-Public Use
  Company Number: US-PFIZER INC-2005155306

PATIENT
  Sex: Female
  Weight: 58.9 kg

DRUGS (8)
  1. PROVERA [Suspect]
     Indication: HORMONE REPLACEMENT THERAPY
     Dosage: 2.5 MG, UNK
     Route: 065
     Dates: start: 19890101, end: 19960101
  2. PROVERA [Suspect]
     Dosage: 5 MG, UNK
     Dates: start: 19890101, end: 19960101
  3. PREMARIN [Suspect]
     Indication: HORMONE REPLACEMENT THERAPY
     Dosage: 0.625 MG, UNK
     Dates: start: 19890101, end: 19960101
  4. CYCRIN [Suspect]
     Indication: HORMONE REPLACEMENT THERAPY
     Dosage: 5 MG, UNK
     Dates: start: 19950101, end: 19960101
  5. PREMPRO [Suspect]
     Indication: HORMONE REPLACEMENT THERAPY
     Dosage: 0.625 MG, UNK
     Dates: start: 19940101, end: 20030101
  6. PREMPRO [Suspect]
     Dosage: 2.5 MG, UNK
     Dates: start: 19940101, end: 20030101
  7. ESTRACE [Suspect]
     Indication: HORMONE REPLACEMENT THERAPY
     Dosage: 1 MG, UNK
     Dates: start: 19940101, end: 19960101
  8. ACTONEL [Concomitant]
     Indication: OSTEOPENIA
     Dosage: UNK
     Dates: start: 20000101, end: 20050101

REACTIONS (1)
  - BREAST CANCER FEMALE [None]
